FAERS Safety Report 24377903 (Version 1)
Quarter: 2024Q3

REPORT INFORMATION
  Report Type: Spontaneous
  Country: US (occurrence: None)
  Receive Date: 20240927
  Receipt Date: 20240927
  Transmission Date: 20241017
  Serious: No
  Sender: Public
  Company Number: None

PATIENT
  Age: 59 Year
  Sex: Female

DRUGS (1)
  1. XDEMVY [Suspect]
     Active Substance: LOTILANER
     Dosage: ONE DROP BID OPHTHALMIC
     Route: 047

REACTIONS (1)
  - Photopsia [None]

NARRATIVE: CASE EVENT DATE: 20240927
